FAERS Safety Report 9279479 (Version 7)
Quarter: 2013Q3

REPORT INFORMATION
  Report Type: Report from Study
  Country: MY (occurrence: MY)
  Receive Date: 20130508
  Receipt Date: 20130810
  Transmission Date: 20140515
  Serious: Yes (Hospitalization)
  Sender: FDA-Public Use
  Company Number: MY-009507513-1305MYS001782

PATIENT
  Age: 28 Year
  Sex: Female
  Weight: 98 kg

DRUGS (35)
  1. BOCEPREVIR [Suspect]
     Indication: HEPATITIS C
     Dosage: 4 DF, QPM, AFTERNOON
     Route: 048
     Dates: start: 20130115, end: 20130207
  2. BOCEPREVIR [Suspect]
     Dosage: 4 DF, QPM, EVENING
     Route: 048
     Dates: start: 20130115, end: 20130207
  3. BOCEPREVIR [Suspect]
     Dosage: 4 DF, QAM, MORNING
     Route: 048
     Dates: start: 20130116, end: 20130207
  4. BOCEPREVIR [Suspect]
     Dosage: 4 DF, QPM, AFTERNOON
     Route: 048
     Dates: start: 20130208, end: 20130215
  5. BOCEPREVIR [Suspect]
     Dosage: 4 DF, QPM, EVENING
     Route: 048
     Dates: start: 20130208, end: 20130223
  6. BOCEPREVIR [Suspect]
     Dosage: 4 DF, QAM, MORNING
     Route: 048
     Dates: start: 20130209, end: 20130307
  7. BOCEPREVIR [Suspect]
     Dosage: 4 DF, QPM, AFTERNOON
     Route: 048
     Dates: start: 20130217, end: 20130307
  8. BOCEPREVIR [Suspect]
     Dosage: 4 DF, QPM, EVENING
     Route: 048
     Dates: start: 20130225, end: 20130307
  9. BOCEPREVIR [Suspect]
     Dosage: 4 DF, QAM, MORNING
     Route: 048
     Dates: start: 20130308, end: 20130404
  10. BOCEPREVIR [Suspect]
     Dosage: 4 DF, QPM, AFTERNOON
     Route: 048
     Dates: start: 20130308, end: 20130404
  11. BOCEPREVIR [Suspect]
     Dosage: 4 DF, QPM, EVENING
     Route: 048
     Dates: start: 20130308, end: 20130404
  12. BOCEPREVIR [Suspect]
     Dosage: 4 DF, QPM, AFTERNOON
     Route: 048
     Dates: start: 20130405, end: 20130502
  13. BOCEPREVIR [Suspect]
     Dosage: 4 DF, QPM, EVENING
     Route: 048
     Dates: start: 20130405, end: 20130502
  14. BOCEPREVIR [Suspect]
     Dosage: 4 DF, QPM, MORNING
     Route: 048
     Dates: start: 20130405, end: 20130502
  15. BOCEPREVIR [Suspect]
     Dosage: 4 DF, UNK
     Route: 048
     Dates: start: 20130518
  16. PEGINTERFERON ALFA-2A [Suspect]
     Indication: HEPATITIS C
     Dosage: 180 MICROGRAM, QW
     Route: 058
     Dates: start: 20121214, end: 20130426
  17. RIBAVIRIN [Suspect]
     Indication: HEPATITIS C
     Dosage: 3 DF, QPM
     Route: 048
     Dates: start: 20121214, end: 20130103
  18. RIBAVIRIN [Suspect]
     Dosage: 3 DF, QAM
     Route: 048
     Dates: start: 20121215, end: 20130103
  19. RIBAVIRIN [Suspect]
     Dosage: 3 DF, QAM
     Route: 048
     Dates: start: 20130104, end: 20130114
  20. RIBAVIRIN [Suspect]
     Dosage: 3 DF, QPM
     Route: 048
     Dates: start: 20130104, end: 20130114
  21. RIBAVIRIN [Suspect]
     Dosage: 3 DF, QAM
     Route: 048
     Dates: start: 20130115, end: 20130207
  22. RIBAVIRIN [Suspect]
     Dosage: 3 DF, QPM
     Route: 048
     Dates: start: 20130115, end: 20130207
  23. RIBAVIRIN [Suspect]
     Dosage: 3 DF, QAM
     Route: 048
     Dates: start: 20130209, end: 20130219
  24. RIBAVIRIN [Suspect]
     Dosage: 3 DF, QPM
     Route: 048
     Dates: start: 20130208, end: 20130212
  25. RIBAVIRIN [Suspect]
     Dosage: 1 DF, QAM
     Route: 048
     Dates: start: 20130220, end: 20130307
  26. RIBAVIRIN [Suspect]
     Dosage: 2 DF, QPM
     Route: 048
     Dates: start: 20130220, end: 20130307
  27. RIBAVIRIN [Suspect]
     Dosage: 2 DF, QAM
     Route: 048
     Dates: start: 20130308, end: 20130404
  28. RIBAVIRIN [Suspect]
     Dosage: 2 DF, QPM
     Route: 048
     Dates: start: 20130308, end: 20130404
  29. RIBAVIRIN [Suspect]
     Dosage: 2 DF, QAM
     Route: 048
     Dates: start: 20130405, end: 20130502
  30. RIBAVIRIN [Suspect]
     Dosage: 2 DF, QPM
     Route: 048
     Dates: start: 20130405, end: 20130409
  31. RIBAVIRIN [Suspect]
     Dosage: 1 DF, QPM
     Route: 048
     Dates: start: 20130410, end: 20130502
  32. RIBAVIRIN [Suspect]
     Dosage: 2 DF, UNK
     Route: 048
     Dates: start: 20130518
  33. ASCORBIC ACID [Concomitant]
     Indication: ROUTINE HEALTH MAINTENANCE
     Dosage: UNK UNK, QD
     Route: 048
     Dates: start: 201109
  34. VITAMIN E [Concomitant]
     Indication: ROUTINE HEALTH MAINTENANCE
     Dosage: 4000 IU, QD
     Route: 048
     Dates: start: 201109
  35. FOLIC ACID [Concomitant]
     Indication: HAEMOGLOBIN DECREASED
     Dosage: 1 MG QD
     Route: 048
     Dates: start: 20130129

REACTIONS (1)
  - Atrioventricular block first degree [Recovered/Resolved]
